FAERS Safety Report 23022086 (Version 1)
Quarter: 2023Q4

REPORT INFORMATION
  Report Type: Spontaneous
  Country: US (occurrence: US)
  Receive Date: 20231003
  Receipt Date: 20231003
  Transmission Date: 20240110
  Serious: No
  Sender: FDA-Public Use
  Company Number: US-SA-SAC20230929000221

PATIENT
  Age: 43 Year
  Sex: Female
  Weight: 85.7 kg

DRUGS (6)
  1. DUPIXENT [Suspect]
     Active Substance: DUPILUMAB
     Indication: Dermatitis atopic
     Dosage: 600MG, 1X
     Route: 058
     Dates: start: 20230906, end: 20230906
  2. PREDNISONE [Concomitant]
     Active Substance: PREDNISONE
  3. SIMVASTATIN [Concomitant]
     Active Substance: SIMVASTATIN
  4. TRAMADOL HCL [Concomitant]
     Active Substance: TRAMADOL HYDROCHLORIDE
  5. NAPROXEN [Concomitant]
     Active Substance: NAPROXEN
  6. DIAZEPAM [Concomitant]
     Active Substance: DIAZEPAM

REACTIONS (2)
  - Dermatitis atopic [Unknown]
  - Product dose omission issue [Unknown]
